FAERS Safety Report 14919698 (Version 4)
Quarter: 2021Q1

REPORT INFORMATION
  Report Type: Other
  Country: GR (occurrence: GR)
  Receive Date: 20180521
  Receipt Date: 20210118
  Transmission Date: 20210419
  Serious: Yes (Death, Other)
  Sender: FDA-Public Use
  Company Number: GR-ASTELLAS-2018US023364

PATIENT
  Age: 56 Year
  Sex: Male

DRUGS (3)
  1. VFEND [Suspect]
     Active Substance: VORICONAZOLE
     Indication: BRONCHOPULMONARY ASPERGILLOSIS
     Route: 048
  2. ZAVICEFTA [Suspect]
     Active Substance: AVIBACTAM SODIUM\CEFTAZIDIME
     Indication: KLEBSIELLA INFECTION
     Dosage: UNK UNK, UNKNOWN FREQ.
     Route: 042
  3. AMPHOTERICIN B, LIPOSOME [Suspect]
     Active Substance: AMPHOTERICIN B
     Indication: BRONCHOPULMONARY ASPERGILLOSIS
     Dosage: UNK, UNKNOWN FREQ.
     Route: 065

REACTIONS (8)
  - Respiratory failure [Fatal]
  - Pneumonia klebsiella [Unknown]
  - Hepatic enzyme increased [Unknown]
  - Hypoxia [Unknown]
  - Disease progression [Unknown]
  - Treatment failure [Unknown]
  - Renal impairment [Unknown]
  - Condition aggravated [Unknown]
